FAERS Safety Report 9765633 (Version 1)
Quarter: 2013Q4

REPORT INFORMATION
  Report Type: Spontaneous
  Country: US (occurrence: US)
  Receive Date: 20131217
  Receipt Date: 20131217
  Transmission Date: 20140711
  Serious: No
  Sender: FDA-Public Use
  Company Number: US-GLAXOSMITHKLINE-A1009184A

PATIENT
  Age: 76 Year
  Sex: Male

DRUGS (8)
  1. VOTRIENT [Suspect]
     Indication: SARCOMA
     Dosage: 4TAB PER DAY
     Route: 048
     Dates: start: 20121229
  2. FELODIPINE [Concomitant]
  3. METFORMIN [Concomitant]
  4. DIGOXIN [Concomitant]
  5. KEFLEX [Concomitant]
  6. FLOMAX [Concomitant]
  7. FINASTERIDE [Concomitant]
  8. ASPIRIN [Concomitant]

REACTIONS (9)
  - Drug ineffective [Unknown]
  - Fatigue [Unknown]
  - Blood pressure increased [Unknown]
  - Nasal discomfort [Unknown]
  - Dry mouth [Unknown]
  - Oral pain [Unknown]
  - Epistaxis [Unknown]
  - Pain [Unknown]
  - Ill-defined disorder [Unknown]
